FAERS Safety Report 6259595-8 (Version None)
Quarter: 2009Q3

REPORT INFORMATION
  Report Type: 
  Country: None (occurrence: None)
  Receive Date: 20090706
  Receipt Date: 20090706
  Transmission Date: 20100115
  Serious: No
  Sender: FDA-Public Use
  Company Number: None

PATIENT
  Sex: Female

DRUGS (1)
  1. LAMICTAL [Suspect]
     Indication: COMPLEX PARTIAL SEIZURES
     Dosage: 300 MG PO BID
     Route: 048

REACTIONS (4)
  - CONVULSION [None]
  - DRUG INTOLERANCE [None]
  - PRODUCT SUBSTITUTION ISSUE [None]
  - THERMAL BURN [None]
